FAERS Safety Report 5085058-1 (Version None)
Quarter: 2006Q3

REPORT INFORMATION
  Report Type: 
  Country: None (occurrence: None)
  Receive Date: 20060815
  Receipt Date: 20060804
  Transmission Date: 20061208
  Serious: Yes (Life-Threatening, Hospitalization)
  Sender: FDA-Public Use
  Company Number: 20063128

PATIENT
  Sex: Male

DRUGS (1)
  1. LIORESAL [Suspect]
     Indication: MUSCLE SPASTICITY
     Dosage: DAILY, INTRATHECAL
     Route: 037

REACTIONS (6)
  - BRAIN HERNIATION [None]
  - CHOKING [None]
  - HYPERHIDROSIS [None]
  - MUSCLE SPASTICITY [None]
  - PNEUMONIA ASPIRATION [None]
  - PYREXIA [None]
